FAERS Safety Report 8253383-9 (Version None)
Quarter: 2012Q2

REPORT INFORMATION
  Report Type: 
  Country: None (occurrence: None)
  Receive Date: 20120402
  Receipt Date: 20120313
  Transmission Date: 20120825
  Serious: No
  Sender: FDA-Public Use
  Company Number: US-AMGEN-USASP2012016389

PATIENT
  Sex: Female

DRUGS (1)
  1. ENBREL [Suspect]
     Indication: RHEUMATOID ARTHRITIS
     Dosage: 50 MG, QWK
     Dates: start: 20100513

REACTIONS (13)
  - FATIGUE [None]
  - OROPHARYNGEAL PAIN [None]
  - DYSPNOEA [None]
  - SPIDER VEIN [None]
  - RESPIRATORY TRACT CONGESTION [None]
  - MUSCULOSKELETAL STIFFNESS [None]
  - HYPOAESTHESIA [None]
  - NASAL CONGESTION [None]
  - RHINORRHOEA [None]
  - SKIN SENSITISATION [None]
  - UPPER RESPIRATORY TRACT INFECTION [None]
  - TENDERNESS [None]
  - PARAESTHESIA [None]
